FAERS Safety Report 8924542 (Version 1)
Quarter: 2012Q4

REPORT INFORMATION
  Report Type: 
  Country: PL (occurrence: PL)
  Receive Date: 20121127
  Receipt Date: 20121127
  Transmission Date: 20130627
  Serious: Yes (Life-Threatening, Hospitalization)
  Sender: FDA-Public Use
  Company Number: PL-GE HEALTHCARE MEDICAL DIAGNOSTICS-VISP-NO-1211S-0540

PATIENT
  Age: 18 Year
  Sex: Female
  Weight: 52 kg

DRUGS (3)
  1. VISIPAQUE [Suspect]
     Indication: HEADACHE
     Route: 042
     Dates: start: 20121114, end: 20121114
  2. VISIPAQUE [Suspect]
     Indication: DIZZINESS
  3. VISIPAQUE [Suspect]
     Indication: DIAGNOSTIC PROCEDURE

REACTIONS (1)
  - Shock [Recovering/Resolving]
